FAERS Safety Report 7437421-9 (Version None)
Quarter: 2011Q2

REPORT INFORMATION
  Report Type: 
  Country: None (occurrence: None)
  Receive Date: 20110426
  Receipt Date: 20100607
  Transmission Date: 20111010
  Serious: No
  Sender: FDA-Public Use
  Company Number: US-PFIZER INC-2010071968

PATIENT
  Sex: Female
  Weight: 54 kg

DRUGS (3)
  1. FLONASE [Concomitant]
     Indication: SINUS DISORDER
     Dosage: UNK
  2. ESTRING [Suspect]
     Indication: ATROPHIC VULVOVAGINITIS
     Dosage: 2 MG, UNK
     Route: 067
     Dates: start: 20090101
  3. AZELASTINE [Concomitant]
     Indication: SINUS DISORDER
     Dosage: UNK

REACTIONS (1)
  - DRUG INEFFECTIVE [None]
